FAERS Safety Report 5511397-3 (Version None)
Quarter: 2007Q4

REPORT INFORMATION
  Report Type: 
  Country: None (occurrence: None)
  Receive Date: 20071109
  Receipt Date: 20071024
  Transmission Date: 20080405
  Serious: No
  Sender: FDA-Public Use
  Company Number: A0687160A

PATIENT
  Age: 54 Year
  Sex: Female

DRUGS (2)
  1. ALTABAX [Suspect]
     Dosage: 10MG TWICE PER DAY
     Route: 061
     Dates: start: 20071009
  2. TRIAMCINOLONE + EUCERIN [Concomitant]

REACTIONS (2)
  - APPLICATION SITE PAIN [None]
  - SKIN DISCOMFORT [None]
